FAERS Safety Report 6102591-1 (Version None)
Quarter: 2009Q1

REPORT INFORMATION
  Report Type: 
  Country: None (occurrence: None)
  Receive Date: 20090304
  Receipt Date: 20081007
  Transmission Date: 20090719
  Serious: No
  Sender: FDA-Public Use
  Company Number: A0747745A

PATIENT
  Age: 67 Year
  Sex: Female

DRUGS (4)
  1. REQUIP [Suspect]
     Indication: DRUG USE FOR UNKNOWN INDICATION
     Dosage: 2MG THREE TIMES PER DAY
     Route: 048
     Dates: start: 20080915
  2. REQUIP XL [Suspect]
     Indication: DRUG USE FOR UNKNOWN INDICATION
     Dosage: 6MG PER DAY
     Route: 048
     Dates: start: 20080101
  3. AMLODIPINE [Concomitant]
  4. SYMBICORT [Concomitant]

REACTIONS (3)
  - DIZZINESS [None]
  - FATIGUE [None]
  - FEELING ABNORMAL [None]
